FAERS Safety Report 10108230 (Version 1)
Quarter: 2014Q2

REPORT INFORMATION
  Report Type: Spontaneous
  Country: CN (occurrence: CN)
  Receive Date: 20140425
  Receipt Date: 20140425
  Transmission Date: 20141212
  Serious: Yes (Other)
  Sender: FDA-Public Use
  Company Number: CN-ABBVIE-14P-035-1229796-00

PATIENT
  Sex: Male

DRUGS (4)
  1. DEPAKINE CHRONO [Suspect]
     Indication: MANIA
     Route: 048
     Dates: start: 20130120
  2. DEPAKINE CHRONO [Suspect]
     Dates: start: 20130624
  3. DEPAKINE CHRONO [Suspect]
     Dates: start: 20130702
  4. DEPAKINE CHRONO [Suspect]
     Route: 048
     Dates: start: 20130706, end: 20130711

REACTIONS (1)
  - Delirium [Unknown]
